FAERS Safety Report 9924338 (Version 1)
Quarter: 2014Q1

REPORT INFORMATION
  Report Type: Report from Study
  Country: US (occurrence: US)
  Receive Date: 20140226
  Receipt Date: 20140226
  Transmission Date: 20141002
  Serious: Yes (Other)
  Sender: FDA-Public Use
  Company Number: US-ROCHE-1333492

PATIENT
  Age: 90 Year
  Sex: Female

DRUGS (7)
  1. LUCENTIS [Suspect]
     Indication: AGE-RELATED MACULAR DEGENERATION
     Route: 050
  2. LUCENTIS [Suspect]
     Indication: AGE-RELATED MACULAR DEGENERATION
     Route: 050
  3. LUCENTIS [Suspect]
     Route: 050
  4. LUCENTIS [Suspect]
     Route: 050
  5. AVASTIN [Suspect]
     Indication: AGE-RELATED MACULAR DEGENERATION
     Dosage: OS
     Route: 050
  6. VIGAMOX [Concomitant]
     Dosage: OS
     Route: 047
  7. GENTAMICIN EYE DROPS [Concomitant]
     Dosage: OS; FOR 3 DAYS
     Route: 047
     Dates: start: 20111109

REACTIONS (24)
  - Blepharitis [Unknown]
  - Macular oedema [Unknown]
  - Cystoid macular oedema [Unknown]
  - Visual field defect [Unknown]
  - Metamorphopsia [Unknown]
  - Pupillary reflex impaired [Unknown]
  - Maculopathy [Unknown]
  - Retinal depigmentation [Unknown]
  - Detachment of retinal pigment epithelium [Unknown]
  - Cutis laxa [Unknown]
  - Vitreous opacities [Unknown]
  - Retinal exudates [Unknown]
  - Macular fibrosis [Unknown]
  - Choroidal neovascularisation [Unknown]
  - Photophobia [Unknown]
  - Eye pain [Unknown]
  - Macular cyst [Unknown]
  - Posterior capsule opacification [Unknown]
  - Vitreous detachment [Unknown]
  - Vitreous degeneration [Unknown]
  - Age-related macular degeneration [Unknown]
  - Eye naevus [Unknown]
  - Visual acuity reduced [Unknown]
  - Off label use [Unknown]
